FAERS Safety Report 14080890 (Version 2)
Quarter: 2017Q4

REPORT INFORMATION
  Report Type: Spontaneous
  Country: AU (occurrence: AU)
  Receive Date: 20171012
  Receipt Date: 20171220
  Transmission Date: 20180321
  Serious: Yes (Other)
  Sender: FDA-Public Use
  Company Number: AU-SA-2017SA194983

PATIENT
  Sex: Female

DRUGS (9)
  1. OSTELIN (CHOLECALCIFEROL) [Suspect]
     Active Substance: CHOLECALCIFEROL
     Route: 048
  2. DOCOSAHEXANOIC ACID/EICOSAPENTAENOIC ACID [Suspect]
     Active Substance: DOCONEXENT\ICOSAPENT
     Route: 048
  3. STELAZINE [Concomitant]
     Active Substance: TRIFLUOPERAZINE HYDROCHLORIDE
  4. ZOLOFT [Concomitant]
     Active Substance: SERTRALINE HYDROCHLORIDE
  5. LIPITOR [Concomitant]
     Active Substance: ATORVASTATIN CALCIUM
  6. SYMBICORT [Concomitant]
     Active Substance: BUDESONIDE\FORMOTEROL FUMARATE DIHYDRATE
  7. MOBIC [Concomitant]
     Active Substance: MELOXICAM
  8. PANADOL [Concomitant]
     Active Substance: ACETAMINOPHEN
  9. KARVEA [Suspect]
     Active Substance: IRBESARTAN
     Route: 048

REACTIONS (4)
  - Alopecia [Unknown]
  - Neutropenia [Unknown]
  - Pruritus [Unknown]
  - Weight decreased [Unknown]

NARRATIVE: CASE EVENT DATE: 2010
